FAERS Safety Report 11516934 (Version 1)
Quarter: 2015Q3

REPORT INFORMATION
  Report Type: Spontaneous
  Country: US (occurrence: US)
  Receive Date: 20150917
  Receipt Date: 20150917
  Transmission Date: 20151125
  Serious: No
  Sender: FDA-Public Use
  Company Number: US-GLENMARK PHARMACEUTICALS INC, USA.-2014GMK012369

PATIENT
  Age: 33 Year
  Sex: Female

DRUGS (2)
  1. NORETHINDRONE ACETATE. [Suspect]
     Active Substance: NORETHINDRONE ACETATE
     Indication: VARICOSE VEINS PELVIC
     Dosage: 5 MG, QD
     Dates: start: 20141110, end: 20141118
  2. LUPRON [Suspect]
     Active Substance: LEUPROLIDE ACETATE
     Indication: VARICOSE VEINS PELVIC
     Dosage: 11.25 MG, EVERY 3 MONTHS
     Dates: start: 20141110

REACTIONS (6)
  - Condition aggravated [Not Recovered/Not Resolved]
  - Headache [Recovered/Resolved]
  - Menorrhagia [Not Recovered/Not Resolved]
  - Muscle spasms [Not Recovered/Not Resolved]
  - Product use issue [Unknown]
  - Pain [Not Recovered/Not Resolved]

NARRATIVE: CASE EVENT DATE: 20141110
